FAERS Safety Report 9818614 (Version 1)
Quarter: 2013Q4

REPORT INFORMATION
  Report Type: Spontaneous
  Country: US (occurrence: None)
  Receive Date: 20131223
  Receipt Date: 20131223
  Transmission Date: 20140711
  Serious: No
  Sender: FDA-Public Use
  Company Number: 219325

PATIENT
  Age: 45 Year
  Sex: Female

DRUGS (2)
  1. PICATO [Suspect]
     Indication: ACTINIC KERATOSIS
     Dosage: 1/6 TUBE ON CHEEKBONE
     Dates: start: 20121008, end: 20121008
  2. SYNTHROID (LEVOTHYROXINE SODIUM) [Concomitant]

REACTIONS (4)
  - Application site vesicles [None]
  - Application site exfoliation [None]
  - Incorrect dose administered [None]
  - Incorrect drug administration duration [None]
